FAERS Safety Report 14795870 (Version 2)
Quarter: 2018Q3

REPORT INFORMATION
  Report Type: Report from Study
  Country: US (occurrence: US)
  Receive Date: 20180423
  Receipt Date: 20180719
  Transmission Date: 20181010
  Serious: No
  Sender: FDA-Public Use
  Company Number: US-AMGEN-USASL2018033684

PATIENT
  Age: 73 Year
  Sex: Female
  Weight: 78.46 kg

DRUGS (3)
  1. REPATHA [Suspect]
     Active Substance: EVOLOCUMAB
     Indication: HYPERCHOLESTEROLAEMIA
     Dosage: 140 MG, Q2WK
     Route: 065
     Dates: start: 20180228
  2. REPATHA [Suspect]
     Active Substance: EVOLOCUMAB
     Indication: BLOOD CHOLESTEROL INCREASED
  3. REPATHA [Suspect]
     Active Substance: EVOLOCUMAB
     Indication: HYPERLIPIDAEMIA

REACTIONS (18)
  - Pain [Recovered/Resolved]
  - Fall [Unknown]
  - Influenza like illness [Recovered/Resolved]
  - Contusion [Unknown]
  - Headache [Recovered/Resolved]
  - Incorrect dose administered by device [Unknown]
  - Abdominal discomfort [Recovered/Resolved]
  - Malaise [Unknown]
  - Dizziness [Recovered/Resolved]
  - Injection site pain [Unknown]
  - Cough [Recovered/Resolved]
  - Wrong technique in product usage process [Unknown]
  - Fear of injection [Unknown]
  - Accidental exposure to product [Unknown]
  - Rhinorrhoea [Recovered/Resolved]
  - Skin burning sensation [Unknown]
  - Myalgia [Unknown]
  - Injection site haemorrhage [Unknown]

NARRATIVE: CASE EVENT DATE: 2018
